FAERS Safety Report 4496548-4 (Version None)
Quarter: 2004Q4

REPORT INFORMATION
  Report Type: 
  Country: None (occurrence: None)
  Receive Date: 20041109
  Receipt Date: 20040614
  Transmission Date: 20050328
  Serious: No
  Sender: FDA-Public Use
  Company Number: US-BRISTOL-MYERS SQUIBB COMPANY-12614079

PATIENT
  Age: 45 Year
  Sex: Female
  Weight: 57 kg

DRUGS (1)
  1. PRINCIPEN '500' [Suspect]
     Indication: ACNE
     Route: 048
     Dates: start: 19970101

REACTIONS (1)
  - HYPERSENSITIVITY [None]
